FAERS Safety Report 13205237 (Version 1)
Quarter: 2017Q1

REPORT INFORMATION
  Report Type: Spontaneous
  Country: FR (occurrence: FR)
  Receive Date: 20170209
  Receipt Date: 20170209
  Transmission Date: 20170428
  Serious: Yes (Hospitalization, Other)
  Sender: FDA-Public Use
  Company Number: FR-PFIZER INC-2017048139

PATIENT
  Age: 68 Year
  Sex: Female

DRUGS (4)
  1. XANAX [Suspect]
     Active Substance: ALPRAZOLAM
     Dosage: 2 MG (8 TABLETS), UNK
     Route: 048
     Dates: start: 20170102, end: 20170102
  2. VENLAFAXINE [Concomitant]
     Active Substance: VENLAFAXINE HYDROCHLORIDE
     Dosage: 75 MG, 2X/DAY (1 IN MORNING, 1 IN EVENING
  3. XANAX [Suspect]
     Active Substance: ALPRAZOLAM
     Dosage: 1 MG (4 TABLETS), UNK
     Route: 048
     Dates: start: 20170103, end: 20170103
  4. XANAX [Suspect]
     Active Substance: ALPRAZOLAM
     Indication: ANXIETY
     Dosage: 0.25 MG, DAILY
     Route: 048

REACTIONS (4)
  - Somnolence [Recovered/Resolved]
  - Logorrhoea [Unknown]
  - Suicidal behaviour [Unknown]
  - Depression [Unknown]

NARRATIVE: CASE EVENT DATE: 20170102
